FAERS Safety Report 5983826-2 (Version None)
Quarter: 2008Q4

REPORT INFORMATION
  Report Type: 
  Country: None (occurrence: None)
  Receive Date: 20081208
  Receipt Date: 20081203
  Transmission Date: 20090506
  Serious: Yes (Death)
  Sender: FDA-Public Use
  Company Number: FI-BRISTOL-MYERS SQUIBB COMPANY-14431654

PATIENT
  Age: 53 Year
  Sex: Male

DRUGS (7)
  1. ABILIFY [Suspect]
     Indication: SCHIZOPHRENIA
     Dates: start: 20080614
  2. LEPONEX [Suspect]
  3. HALOPERIDOL [Suspect]
  4. ZYPREXA [Suspect]
  5. CISORDINOL [Suspect]
  6. TENOX [Concomitant]
  7. ATIVAN [Concomitant]

REACTIONS (2)
  - CARDIOMYOPATHY [None]
  - ELECTROCARDIOGRAM QT PROLONGED [None]
